FAERS Safety Report 9473365 (Version 1)
Quarter: 2013Q3

REPORT INFORMATION
  Report Type: Report from Study
  Country: CA (occurrence: CA)
  Receive Date: 20130823
  Receipt Date: 20130823
  Transmission Date: 20140515
  Serious: Yes (Hospitalization, Other)
  Sender: FDA-Public Use
  Company Number: CA-JNJFOC-20130809691

PATIENT
  Age: 34 Year
  Sex: Male
  Weight: 70 kg

DRUGS (5)
  1. REMICADE [Suspect]
     Indication: CROHN^S DISEASE
     Route: 042
  2. REMICADE [Suspect]
     Indication: CROHN^S DISEASE
     Route: 042
  3. FERROUS GLUCONATE [Concomitant]
     Dosage: 2 OF ONE ORAL DOSE
     Route: 065
  4. LOSEC [Concomitant]
     Dosage: 2 OF ONE ORAL DOSE
     Route: 048
  5. VITAMIN B12 [Concomitant]
     Dosage: MONTHLY
     Route: 050

REACTIONS (3)
  - Dehydration [Recovered/Resolved]
  - Ileostomy closure [Recovered/Resolved]
  - Ileostomy [Recovered/Resolved]
